FAERS Safety Report 10073822 (Version 1)
Quarter: 2014Q2

REPORT INFORMATION
  Report Type: Report from Study
  Country: JP (occurrence: JP)
  Receive Date: 20140411
  Receipt Date: 20140411
  Transmission Date: 20141212
  Serious: Yes (Life-Threatening, Hospitalization, Other)
  Sender: FDA-Public Use
  Company Number: JP-TAKEDA-2014TJP004819

PATIENT
  Age: 65 Year
  Sex: Male

DRUGS (4)
  1. ALOGLIPTIN [Suspect]
     Indication: TYPE 2 DIABETES MELLITUS
     Dosage: 25 MG, QD
     Route: 048
     Dates: start: 20130105, end: 20131127
  2. AMARYL [Concomitant]
     Indication: TYPE 2 DIABETES MELLITUS
     Dosage: 1 MG, 1 DAY
     Route: 048
  3. GLUCOBAY [Concomitant]
     Indication: TYPE 2 DIABETES MELLITUS
     Dosage: 300 MG, 1 DAY
     Route: 048
  4. LIPITOR [Concomitant]
     Dosage: UNK
     Route: 048

REACTIONS (1)
  - Acute myocardial infarction [Recovering/Resolving]
